FAERS Safety Report 5570137-2 (Version None)
Quarter: 2007Q4

REPORT INFORMATION
  Report Type: 
  Country: None (occurrence: None)
  Receive Date: 20071220
  Receipt Date: 20071212
  Transmission Date: 20080405
  Serious: Yes (Hospitalization)
  Sender: FDA-Public Use
  Company Number: IT-PFIZER INC-2007104860

PATIENT
  Sex: Female

DRUGS (5)
  1. SALAZOPYRIN [Suspect]
     Indication: SERONEGATIVE ARTHRITIS
     Route: 048
     Dates: start: 20071020, end: 20071118
  2. KLACID [Concomitant]
     Route: 048
     Dates: start: 20071108, end: 20071114
  3. INDERAL [Concomitant]
  4. ALL OTHER THERAPEUTIC PRODUCTS [Concomitant]
  5. BONIVA [Concomitant]
     Dates: start: 20071105, end: 20071105

REACTIONS (3)
  - DACTYLITIS [None]
  - PYREXIA [None]
  - RASH PAPULAR [None]
